FAERS Safety Report 14348866 (Version 1)
Quarter: 2018Q1

REPORT INFORMATION
  Report Type: Spontaneous
  Country: US (occurrence: US)
  Receive Date: 20180104
  Receipt Date: 20180104
  Transmission Date: 20180509
  Serious: No
  Sender: FDA-Public Use
  Company Number: US-TEVA-2017-US-830539

PATIENT
  Sex: Female

DRUGS (2)
  1. HYDROXYZINE PAMOATE. [Suspect]
     Active Substance: HYDROXYZINE PAMOATE
     Dosage: 25 MG, ORAL, TAKE 1- 2 CAPSULES BY MOUTH EVERY 4-6 HOURS AS NEEDED.
     Route: 048
  2. HYDROCODONE/ACETAMINOPHEN [Suspect]
     Active Substance: ACETAMINOPHEN\HYDROCODONE
     Indication: PAIN
     Dosage: 5/325 MG ORAL TABLET, 1-2 TABLETS EVERY 4 TO 6 HOURS AS NEEDED
     Route: 048
     Dates: end: 201510

REACTIONS (1)
  - Pruritus [Unknown]
